FAERS Safety Report 10430608 (Version 1)
Quarter: 2014Q3

REPORT INFORMATION
  Report Type: Spontaneous
  Country: GB (occurrence: GB)
  Receive Date: 20140904
  Receipt Date: 20140904
  Transmission Date: 20150326
  Serious: No
  Sender: FDA-Public Use
  Company Number: GB-ELI_LILLY_AND_COMPANY-GB201409000087

PATIENT
  Age: 61 Year
  Sex: Female

DRUGS (2)
  1. ZYPREXA [Suspect]
     Active Substance: OLANZAPINE
     Dosage: 10 MG, QD
     Route: 048
     Dates: start: 20140703
  2. ZYPREXA [Suspect]
     Active Substance: OLANZAPINE
     Indication: PERSONALITY DISORDER
     Dosage: 7.5 MG, QD
     Route: 048
     Dates: start: 20140502

REACTIONS (2)
  - Epistaxis [Not Recovered/Not Resolved]
  - Drug ineffective [Unknown]

NARRATIVE: CASE EVENT DATE: 20140807
